FAERS Safety Report 18313621 (Version 1)
Quarter: 2020Q3

REPORT INFORMATION
  Report Type: Report from Study
  Country: US (occurrence: US)
  Receive Date: 20200925
  Receipt Date: 20200925
  Transmission Date: 20201103
  Serious: Yes (Death, Hospitalization)
  Sender: FDA-Public Use
  Company Number: US-JNJFOC-A-NJ2019-192344

PATIENT
  Age: 68 Year
  Sex: Female
  Weight: 48.98 kg

DRUGS (10)
  1. VELETRI [Suspect]
     Active Substance: EPOPROSTENOL
     Dosage: 36 NG/KG, PER MIN
     Route: 042
  2. VELETRI [Suspect]
     Active Substance: EPOPROSTENOL
     Dosage: 48 NG/KG, PER MIN
     Route: 042
  3. OPSUMIT [Suspect]
     Active Substance: MACITENTAN
     Indication: PULMONARY HYPERTENSION
     Dosage: 10 MG, QD
     Route: 048
  4. VELETRI [Suspect]
     Active Substance: EPOPROSTENOL
     Indication: PULMONARY HYPERTENSION
     Dosage: 46 NG/KG, PER MIN
     Route: 042
  5. TADALAFIL. [Concomitant]
     Active Substance: TADALAFIL
  6. OPSUMIT [Suspect]
     Active Substance: MACITENTAN
     Route: 048
  7. VELETRI [Suspect]
     Active Substance: EPOPROSTENOL
     Dosage: 34.7 NG/KG, PER MIN
     Route: 042
  8. OXYGEN. [Concomitant]
     Active Substance: OXYGEN
     Dosage: UNK
     Route: 055
  9. WARFARIN [Concomitant]
     Active Substance: WARFARIN
  10. OXYGEN. [Concomitant]
     Active Substance: OXYGEN
     Dosage: 4 L, PER MIN
     Route: 055

REACTIONS (13)
  - Abdominal distension [Unknown]
  - Discomfort [Unknown]
  - Pulmonary arterial hypertension [Unknown]
  - Dyspnoea at rest [Unknown]
  - Palpitations [Not Recovered/Not Resolved]
  - Hot flush [Unknown]
  - Adverse event [Unknown]
  - Death [Fatal]
  - Dyspnoea exertional [Unknown]
  - Night sweats [Unknown]
  - Fluid retention [Unknown]
  - Condition aggravated [Unknown]
  - Dyspnoea [Not Recovered/Not Resolved]

NARRATIVE: CASE EVENT DATE: 201909
